FAERS Safety Report 7037340-6 (Version None)
Quarter: 2010Q4

REPORT INFORMATION
  Report Type: 
  Country: None (occurrence: None)
  Receive Date: 20101011
  Receipt Date: 20101005
  Transmission Date: 20110411
  Serious: Yes (Life-Threatening, Other)
  Sender: FDA-Public Use
  Company Number: US-BAYER-201041685GPV

PATIENT
  Age: 36 Year
  Sex: Female

DRUGS (13)
  1. CIPROFLOXACIN [Suspect]
     Indication: URINARY TRACT INFECTION
  2. ACETAMINOPHEN [Suspect]
     Indication: PRODUCT USED FOR UNKNOWN INDICATION
  3. NITROFURANTOIN [Suspect]
     Indication: URINARY TRACT INFECTION
  4. FLUIDS [Concomitant]
     Indication: RESUSCITATION
     Route: 042
  5. VANCOMYCIN [Concomitant]
     Indication: RESUSCITATION
     Route: 042
  6. ERTAPENEM [Concomitant]
     Indication: TACHYCARDIA
     Route: 042
  7. METRONIDAZOLE [Concomitant]
     Indication: TACHYCARDIA
  8. CALCINEURIN INHIBITOR [Concomitant]
  9. CYCLOSPORINE [Concomitant]
     Indication: LIVER TRANSPLANT REJECTION
  10. STEROIDS [Concomitant]
     Indication: LIVER TRANSPLANT REJECTION
     Dosage: STRESS-DOSE
     Route: 042
  11. STEROIDS [Concomitant]
     Route: 048
  12. VASOPRESSORS [Concomitant]
     Indication: HYPOTENSION
  13. NOREPINEPHRINE [Concomitant]
     Route: 042

REACTIONS (20)
  - ABDOMINAL COMPARTMENT SYNDROME [None]
  - ABSCESS INTESTINAL [None]
  - ACUTE HEPATIC FAILURE [None]
  - ASCITES [None]
  - BLOOD CREATININE INCREASED [None]
  - BLOOD UREA INCREASED [None]
  - CLOSTRIDIUM DIFFICILE COLITIS [None]
  - HAEMATOCRIT DECREASED [None]
  - HYPOTENSION [None]
  - LEUKOCYTOSIS [None]
  - LIVER INJURY [None]
  - LIVER TRANSPLANT [None]
  - LIVER TRANSPLANT REJECTION [None]
  - MUCOSAL ULCERATION [None]
  - MULTI-ORGAN FAILURE [None]
  - NEUROTOXICITY [None]
  - PAPILLITIS [None]
  - RENAL IMPAIRMENT [None]
  - TACHYCARDIA [None]
  - URINARY TRACT INFECTION [None]
